FAERS Safety Report 21853389 (Version 4)
Quarter: 2023Q1

REPORT INFORMATION
  Report Type: Report from Study
  Country: US (occurrence: US)
  Receive Date: 20230112
  Receipt Date: 20230222
  Transmission Date: 20230417
  Serious: Yes (Other)
  Sender: FDA-Public Use
  Company Number: US-002147023-NVSC2023US006368

PATIENT
  Sex: Male

DRUGS (1)
  1. ENTRESTO [Suspect]
     Active Substance: SACUBITRIL\VALSARTAN
     Indication: Product used for unknown indication
     Dosage: 1 DOSAGE FORM, BID
     Route: 048
     Dates: start: 202211

REACTIONS (8)
  - Coronary artery occlusion [Unknown]
  - Vision blurred [Unknown]
  - Swelling [Unknown]
  - Arthritis [Unknown]
  - Feeling abnormal [Unknown]
  - Fatigue [Unknown]
  - Product use issue [Unknown]
  - Product dose omission issue [Unknown]
